FAERS Safety Report 6180549-4 (Version None)
Quarter: 2009Q2

REPORT INFORMATION
  Report Type: 
  Country: None (occurrence: None)
  Receive Date: 20090506
  Receipt Date: 20090429
  Transmission Date: 20091009
  Serious: Yes (Hospitalization)
  Sender: FDA-Public Use
  Company Number: US-BAYER-200919476NA

PATIENT
  Sex: Male

DRUGS (6)
  1. LEVITRA [Suspect]
     Indication: PROSTATIC OPERATION
     Dosage: TOTAL DAILY DOSE: 10 MG  UNIT DOSE: 20 MG
     Dates: start: 20090302
  2. FLOVENT [Concomitant]
  3. NEXIUM [Concomitant]
  4. XOPENEX [Concomitant]
  5. COMBIVENT [Concomitant]
  6. ANTIBIOTICS [Concomitant]

REACTIONS (5)
  - ARTHRALGIA [None]
  - BACK PAIN [None]
  - DYSPNOEA [None]
  - MUSCULOSKELETAL CHEST PAIN [None]
  - PAIN IN EXTREMITY [None]
